FAERS Safety Report 24923832 (Version 1)
Quarter: 2025Q1

REPORT INFORMATION
  Report Type: Spontaneous
  Country: US (occurrence: US)
  Receive Date: 20250204
  Receipt Date: 20250204
  Transmission Date: 20250409
  Serious: No
  Sender: ELI LILLY AND COMPANY
  Company Number: US-ELI_LILLY_AND_COMPANY-US202502001998

PATIENT
  Age: 63 Year
  Sex: Female

DRUGS (4)
  1. ERBITUX [Suspect]
     Active Substance: CETUXIMAB
     Indication: Head and neck cancer metastatic
     Dosage: 450 MG/M2, WEEKLY (1/W)
     Route: 042
     Dates: start: 20250114
  2. ERBITUX [Suspect]
     Active Substance: CETUXIMAB
     Indication: Breast cancer metastatic
     Dosage: 250 MG/M2, WEEKLY (1/W)
     Route: 042
  3. CARBOPLATIN [Concomitant]
     Active Substance: CARBOPLATIN
     Indication: Head and neck cancer metastatic
     Dates: start: 20250114
  4. FLUOROURACIL [Concomitant]
     Active Substance: FLUOROURACIL
     Indication: Head and neck cancer metastatic
     Dates: start: 20250114

REACTIONS (1)
  - Neutropenia [Not Recovered/Not Resolved]
